FAERS Safety Report 6078419-5 (Version None)
Quarter: 2009Q1

REPORT INFORMATION
  Report Type: 
  Country: None (occurrence: None)
  Receive Date: 20090212
  Receipt Date: 20090204
  Transmission Date: 20090719
  Serious: Yes (Death, Hospitalization)
  Sender: FDA-Public Use
  Company Number: 2008US000981

PATIENT
  Age: 61 Year
  Sex: Male
  Weight: 93 kg

DRUGS (8)
  1. PROGRAF [Suspect]
     Indication: RENAL TRANSPLANT
     Dosage: 1.5 DF, BID, ORAL, 1 DF, BID, ORAL
     Route: 048
     Dates: start: 20061023, end: 20070320
  2. PROGRAF [Suspect]
     Indication: RENAL TRANSPLANT
     Dosage: 1.5 DF, BID, ORAL, 1 DF, BID, ORAL
     Route: 048
     Dates: start: 20060215
  3. PROGRAF [Suspect]
     Indication: RENAL TRANSPLANT
     Dosage: 1.5 DF, BID, ORAL, 1 DF, BID, ORAL
     Route: 048
     Dates: start: 20070321
  4. LIPITOR [Concomitant]
  5. METOPROLOL TARTRATE [Concomitant]
  6. ASPIRIN [Concomitant]
  7. FOLIC ACID [Concomitant]
  8. CELLCEPT [Concomitant]

REACTIONS (3)
  - METASTASES TO LYMPH NODES [None]
  - METASTASES TO THYROID [None]
  - METASTATIC MALIGNANT MELANOMA [None]
